FAERS Safety Report 7210058-2 (Version None)
Quarter: 2011Q1

REPORT INFORMATION
  Report Type: 
  Country: None (occurrence: None)
  Receive Date: 20110105
  Receipt Date: 20050415
  Transmission Date: 20110831
  Serious: No
  Sender: FDA-Public Use
  Company Number: 2005BI008063

PATIENT
  Sex: Male

DRUGS (6)
  1. AVONEX [Concomitant]
     Indication: MULTIPLE SCLEROSIS
     Route: 030
     Dates: start: 20020326, end: 20050128
  2. PREDNISONE [Concomitant]
  3. ATENOLOL [Concomitant]
  4. LORAZEPAM [Concomitant]
  5. TYSABRI [Suspect]
     Indication: MULTIPLE SCLEROSIS
     Route: 042
     Dates: start: 20050128, end: 20050225
  6. PROVIGIL [Concomitant]

REACTIONS (2)
  - HEART RATE INCREASED [None]
  - DEPRESSION [None]
